FAERS Safety Report 9164606 (Version 1)
Quarter: 2013Q1

REPORT INFORMATION
  Report Type: Spontaneous
  Country: FR (occurrence: FR)
  Receive Date: 20130315
  Receipt Date: 20130315
  Transmission Date: 20140127
  Serious: Yes (Life-Threatening, Hospitalization, Other)
  Sender: FDA-Public Use
  Company Number: FR-RANBAXY-2013RR-66126

PATIENT
  Age: 28 Year
  Sex: Female

DRUGS (10)
  1. CIPROFLOXACIN [Suspect]
     Indication: PYREXIA
     Dosage: 500 MG, BID
     Route: 048
  2. METHOTREXATE [Interacting]
     Indication: NON-HODGKIN^S LYMPHOMA
     Dosage: HIGH DOSE, 3 G/M2
     Route: 042
  3. IFOSFAMIDE [Suspect]
     Indication: NON-HODGKIN^S LYMPHOMA
     Dosage: UNK
     Route: 065
  4. ETOPOSIDE [Suspect]
     Indication: NON-HODGKIN^S LYMPHOMA
     Dosage: UNK
     Route: 065
  5. CYTARABINE [Suspect]
     Indication: NON-HODGKIN^S LYMPHOMA
     Dosage: UNK
     Route: 065
  6. SODIUM BICARBONATE [Concomitant]
     Indication: DRUG TOXICITY PROPHYLAXIS
     Dosage: UNK
     Route: 065
  7. VALACYCLOVIR [Suspect]
     Indication: ANTIVIRAL PROPHYLAXIS
     Dosage: 500 MG, BID
     Route: 065
  8. VALACYCLOVIR [Suspect]
     Indication: ANTIVIRAL PROPHYLAXIS
  9. CEFOTAXIME [Concomitant]
     Indication: PYREXIA
     Dosage: 1 G, TID
     Route: 042
  10. CEFOTAXIME [Concomitant]
     Indication: CHILLS

REACTIONS (6)
  - Toxicity to various agents [Unknown]
  - Pancytopenia [Recovering/Resolving]
  - Mucosal inflammation [Unknown]
  - Diarrhoea [Unknown]
  - Skin necrosis [Unknown]
  - Drug interaction [Unknown]
